FAERS Safety Report 5148927-X (Version None)
Quarter: 2006Q4

REPORT INFORMATION
  Report Type: 
  Country: None (occurrence: None)
  Receive Date: 20061113
  Receipt Date: 20061030
  Transmission Date: 20070319
  Serious: Yes (Hospitalization)
  Sender: FDA-Public Use
  Company Number: PHEH2006US13512

PATIENT
  Age: 82 Year
  Sex: Female

DRUGS (3)
  1. ZELNORM [Suspect]
  2. ACETYLSALICYLIC ACID SRT [Suspect]
  3. SALICYLATES [Suspect]

REACTIONS (1)
  - GASTROINTESTINAL HAEMORRHAGE [None]
